FAERS Safety Report 7668155-3 (Version None)
Quarter: 2011Q3

REPORT INFORMATION
  Report Type: 
  Country: None (occurrence: None)
  Receive Date: 20110808
  Receipt Date: 20110802
  Transmission Date: 20111222
  Serious: Yes (Hospitalization)
  Sender: FDA-Public Use
  Company Number: PH-PFIZER INC-2011176864

PATIENT
  Age: 88 Year
  Sex: Female

DRUGS (2)
  1. DIFLUCAN [Suspect]
     Indication: VAGINAL INFECTION
  2. MACRODANTIN [Concomitant]

REACTIONS (2)
  - DYSPNOEA [None]
  - PULMONARY CONGESTION [None]
